FAERS Safety Report 7781459-9 (Version None)
Quarter: 2011Q3

REPORT INFORMATION
  Report Type: 
  Country: None (occurrence: None)
  Receive Date: 20110923
  Receipt Date: 20110908
  Transmission Date: 20111222
  Serious: Yes (Other)
  Sender: FDA-Public Use
  Company Number: AUR-APL-2011-04616

PATIENT
  Age: 38 Year
  Sex: Male

DRUGS (16)
  1. ADDITRACE (ADDITRACE) [Concomitant]
  2. LANSOPRAZOLE [Concomitant]
  3. MACROGOL (MACROGOL) [Concomitant]
  4. PABRINEX (PARENTROVITE /00041801/) [Concomitant]
  5. TOTAL PARENTERAL NUTRITION (SOLUTIONS FOR PARENTERAL NUTRITION) [Concomitant]
  6. FLUCONAZOLE [Suspect]
     Indication: PRODUCT USED FOR UNKNOWN INDICATION
     Dosage: (800 MG),INTRAVENOUS
     Route: 042
  7. HEPARIN [Concomitant]
  8. CLONIDINE [Concomitant]
  9. HYDROCORTONE [Concomitant]
  10. PROPOFOL [Concomitant]
  11. FENTANYL [Concomitant]
  12. NORADRENALINE (NORADRENALINE) [Concomitant]
  13. QUETIAPINE FUMARATE [Suspect]
     Indication: DELIRIUM
     Dosage: (25 MG,1 D)
  14. DOCUSATE (DOCUSATE) [Concomitant]
  15. INSULIN (INSULIN) [Concomitant]
  16. SENNA-MINT WAF [Concomitant]

REACTIONS (2)
  - DRUG INTERACTION [None]
  - ELECTROCARDIOGRAM QT PROLONGED [None]
